FAERS Safety Report 19890554 (Version 3)
Quarter: 2021Q4

REPORT INFORMATION
  Report Type: Spontaneous
  Country: BR (occurrence: BR)
  Receive Date: 20210928
  Receipt Date: 20211110
  Transmission Date: 20220303
  Serious: Yes (Hospitalization, Other)
  Sender: FDA-Public Use
  Company Number: BR-MLMSERVICE-20210915-3107997-1

PATIENT
  Age: 39 Year
  Sex: Male

DRUGS (2)
  1. INFLIXIMAB [Suspect]
     Active Substance: INFLIXIMAB
     Indication: Crohn^s disease
     Dosage: 5 MG/KG, CYCLIC, EVERY 8 WEEKS
  2. AZATHIOPRINE [Suspect]
     Active Substance: AZATHIOPRINE
     Indication: Crohn^s disease
     Dosage: 150 MG, DAILY (2.0 MG/KG)

REACTIONS (3)
  - Histoplasmosis disseminated [Recovering/Resolving]
  - Granulomatous liver disease [Recovering/Resolving]
  - Condition aggravated [Unknown]
